FAERS Safety Report 8117111-X (Version None)
Quarter: 2012Q1

REPORT INFORMATION
  Report Type: 
  Country: None (occurrence: None)
  Receive Date: 20120206
  Receipt Date: 20120123
  Transmission Date: 20120608
  Serious: Yes (Disabling)
  Sender: FDA-Public Use
  Company Number: US-BAUSCH-2012BL000072

PATIENT
  Age: 53 Year
  Sex: Female

DRUGS (7)
  1. ALLEGRA [Concomitant]
  2. BESIVANCE [Suspect]
     Indication: POSTOPERATIVE CARE
     Route: 047
     Dates: start: 20111208, end: 20111208
  3. BESIVANCE [Suspect]
     Indication: OFF LABEL USE
     Route: 047
     Dates: start: 20111208, end: 20111208
  4. GLUCOSAMINE [Concomitant]
  5. PROPYLENE GLYCOL [Concomitant]
     Indication: POSTOPERATIVE CARE
     Route: 047
     Dates: start: 20111209, end: 20111209
  6. CALCIUM [Concomitant]
  7. PREDNISOLONE ACETATE [Concomitant]
     Indication: POSTOPERATIVE CARE
     Route: 047
     Dates: start: 20111208

REACTIONS (2)
  - DIFFUSE LAMELLAR KERATITIS [None]
  - VISUAL ACUITY REDUCED [None]
